FAERS Safety Report 21714419 (Version 1)
Quarter: 2022Q4

REPORT INFORMATION
  Report Type: Spontaneous
  Country: JP (occurrence: JP)
  Receive Date: 20221212
  Receipt Date: 20221212
  Transmission Date: 20230113
  Serious: Yes (Hospitalization)
  Sender: FDA-Public Use
  Company Number: JP-DSJP-DSJ-2022-144444

PATIENT
  Age: 68 Year
  Sex: Female

DRUGS (1)
  1. EDOXABAN TOSYLATE [Suspect]
     Active Substance: EDOXABAN TOSYLATE
     Indication: Portal vein thrombosis
     Dosage: UNK
     Route: 048

REACTIONS (2)
  - Suture related complication [Recovered/Resolved]
  - Post procedural bile leak [Recovered/Resolved]
